FAERS Safety Report 9665159 (Version 1)
Quarter: 2013Q4

REPORT INFORMATION
  Report Type: Report from Study
  Country: BR (occurrence: BR)
  Receive Date: 20131103
  Receipt Date: 20131103
  Transmission Date: 20140711
  Serious: Yes (Other)
  Sender: FDA-Public Use
  Company Number: BR-US-EMD SERONO, INC.-7246046

PATIENT
  Sex: Female

DRUGS (4)
  1. REBIF [Suspect]
     Indication: MULTIPLE SCLEROSIS
     Dates: start: 20080229
  2. LASILACTONA [Concomitant]
     Indication: PRODUCT USED FOR UNKNOWN INDICATION
  3. MANTIDAN [Concomitant]
     Indication: PRODUCT USED FOR UNKNOWN INDICATION
  4. SIMVASTATIN [Concomitant]
     Indication: PROPHYLAXIS

REACTIONS (10)
  - Diabetes mellitus [Not Recovered/Not Resolved]
  - Asthenia [Not Recovered/Not Resolved]
  - Hypoaesthesia [Not Recovered/Not Resolved]
  - Balance disorder [Not Recovered/Not Resolved]
  - Dyspnoea [Not Recovered/Not Resolved]
  - Confusional state [Not Recovered/Not Resolved]
  - Thyroid function test abnormal [Not Recovered/Not Resolved]
  - Pyrexia [Not Recovered/Not Resolved]
  - Fatigue [Not Recovered/Not Resolved]
  - Headache [Not Recovered/Not Resolved]
